FAERS Safety Report 24746395 (Version 1)
Quarter: 2024Q4

REPORT INFORMATION
  Report Type: Spontaneous
  Country: US (occurrence: US)
  Receive Date: 20241218
  Receipt Date: 20241218
  Transmission Date: 20250114
  Serious: No
  Sender: AUROBINDO
  Company Number: US-AUROBINDO-AUR-APL-2024-060000

PATIENT
  Sex: Female

DRUGS (1)
  1. LENALIDOMIDE [Suspect]
     Active Substance: LENALIDOMIDE
     Indication: Plasma cell myeloma
     Dosage: UNK (DAILY #21- IT IS A 28-DAY CYCLE)
     Route: 048

REACTIONS (3)
  - Nasal congestion [Recovering/Resolving]
  - Nasopharyngitis [Unknown]
  - Treatment delayed [Unknown]

NARRATIVE: CASE EVENT DATE: 20241113
